FAERS Safety Report 10576305 (Version 2)
Quarter: 2015Q1

REPORT INFORMATION
  Report Type: Spontaneous
  Country: JP (occurrence: JP)
  Receive Date: 20141111
  Receipt Date: 20150326
  Transmission Date: 20150720
  Serious: Yes (Life-Threatening)
  Sender: FDA-Public Use
  Company Number: JP-009507513-1411JPN003912

PATIENT
  Age: 64 Year
  Sex: Male
  Weight: 48.5 kg

DRUGS (14)
  1. ITOROL [Concomitant]
     Active Substance: ISOSORBIDE MONONITRATE
     Indication: ANGINA PECTORIS
     Dosage: 20 MG, BID
  2. LACTULOSE. [Concomitant]
     Active Substance: LACTULOSE
     Indication: CONSTIPATION
     Dosage: 12 G, TID
     Route: 048
     Dates: end: 20141027
  3. MAGMITT [Concomitant]
     Active Substance: MAGNESIUM OXIDE
     Indication: CONSTIPATION
     Dosage: 330 MG, BID
     Dates: end: 20141031
  4. DICLOFENAC SODIUM. [Suspect]
     Active Substance: DICLOFENAC SODIUM
     Indication: PAIN
     Dosage: 37.50 MG, BID
     Route: 048
     Dates: end: 20141104
  5. PLAVIX [Concomitant]
     Active Substance: CLOPIDOGREL BISULFATE
     Indication: ANGINA PECTORIS
     Dosage: 75 MG, QD
     Route: 048
  6. DICLOFENAC SODIUM. [Suspect]
     Active Substance: DICLOFENAC SODIUM
     Dosage: DAILY DOSE 25 MG
     Route: 054
  7. CRESTOR [Concomitant]
     Active Substance: ROSUVASTATIN CALCIUM
     Dosage: 2.5 MG, QD
     Route: 048
     Dates: end: 20141104
  8. MIYA-BM [Concomitant]
     Active Substance: CLOSTRIDIUM BUTYRICUM SPORES STRAIN M-55
     Indication: DIARRHOEA
     Dosage: 20 MG, TID
     Route: 048
     Dates: start: 20141102, end: 20141104
  9. TRESIBA [Concomitant]
     Active Substance: INSULIN DEGLUDEC
     Dosage: 7 DF, QD
     Route: 058
     Dates: end: 20141104
  10. HUMALOG [Concomitant]
     Active Substance: INSULIN LISPRO
     Indication: TYPE 1 DIABETES MELLITUS
     Dosage: DAILY DOSE 14 DF
     Route: 058
     Dates: end: 20141104
  11. LOPEMIN [Concomitant]
     Active Substance: LOPERAMIDE HYDROCHLORIDE
     Indication: DIARRHOEA
     Dosage: 1 MG, QD
     Route: 048
     Dates: start: 20141102, end: 20141104
  12. NESP [Concomitant]
     Active Substance: DARBEPOETIN ALFA
     Route: 058
  13. TRYPTANOL [Suspect]
     Active Substance: AMITRIPTYLINE
     Indication: PAIN
     Dosage: 10 MG, TID
     Route: 048
     Dates: start: 20141028, end: 20141104
  14. LANSOPRAZOLE. [Concomitant]
     Active Substance: LANSOPRAZOLE
     Indication: PROPHYLAXIS AGAINST GASTROINTESTINAL ULCER
     Dosage: 15 MG, QD
     Route: 048
     Dates: end: 20141104

REACTIONS (2)
  - Diarrhoea [Recovered/Resolved]
  - Acute kidney injury [Recovered/Resolved]

NARRATIVE: CASE EVENT DATE: 20141028
